FAERS Safety Report 11638195 (Version 1)
Quarter: 2015Q4

REPORT INFORMATION
  Report Type: Spontaneous
  Country: NL (occurrence: NL)
  Receive Date: 20151016
  Receipt Date: 20151016
  Transmission Date: 20160304
  Serious: Yes (Hospitalization)
  Sender: FDA-Public Use
  Company Number: NL-MEDA-2015100045

PATIENT
  Age: 60 Year
  Sex: Female

DRUGS (1)
  1. ALLERGODIL 0.5 MG/ML EYE DROPS [Suspect]
     Active Substance: AZELASTINE
     Indication: CONJUNCTIVITIS ALLERGIC
     Route: 047
     Dates: start: 20150728, end: 20150730

REACTIONS (8)
  - Back pain [Recovered/Resolved]
  - Nausea [Recovered/Resolved]
  - Palpitations [Recovered/Resolved]
  - Dysgeusia [Recovered/Resolved]
  - Headache [Recovered/Resolved]
  - Chest discomfort [Recovered/Resolved]
  - Abdominal pain upper [Recovered/Resolved]
  - Insomnia [Recovered/Resolved]

NARRATIVE: CASE EVENT DATE: 20150728
